FAERS Safety Report 11323159 (Version 2)
Quarter: 2015Q3

REPORT INFORMATION
  Report Type: Report from Study
  Country: BR (occurrence: BR)
  Receive Date: 20150730
  Receipt Date: 20150813
  Transmission Date: 20151125
  Serious: Yes (Other)
  Sender: FDA-Public Use
  Company Number: PHHY2015BR090192

PATIENT
  Sex: Male
  Weight: 71 kg

DRUGS (2)
  1. DIOVAN AMLO FIX [Suspect]
     Active Substance: AMLODIPINE\VALSARTAN
     Indication: HYPERTENSION
     Dosage: 1 DF, QD
     Route: 048
     Dates: start: 2009
  2. DIOVAN AMLO FIX [Suspect]
     Active Substance: AMLODIPINE\VALSARTAN
     Indication: MYOCARDIAL INFARCTION
     Dosage: 1 DF, QD
     Route: 048

REACTIONS (3)
  - Weight decreased [Recovering/Resolving]
  - Throat cancer [Recovering/Resolving]
  - Blood pressure abnormal [Recovering/Resolving]
